FAERS Safety Report 22657922 (Version 1)
Quarter: 2023Q2

REPORT INFORMATION
  Report Type: Spontaneous
  Country: US (occurrence: US)
  Receive Date: 20230630
  Receipt Date: 20230630
  Transmission Date: 20230721
  Serious: No
  Sender: FDA-Public Use
  Company Number: US-Accord-307318

PATIENT
  Sex: Female
  Weight: 36.29 kg

DRUGS (1)
  1. CLONAZEPAM [Suspect]
     Active Substance: CLONAZEPAM
     Indication: Anxiety
     Dosage: STRENGTH: 2MG, ?TWICE DAILY
     Route: 048

REACTIONS (8)
  - Nausea [Not Recovered/Not Resolved]
  - Headache [Not Recovered/Not Resolved]
  - Blood pressure increased [Not Recovered/Not Resolved]
  - Wrong technique in product usage process [Unknown]
  - Product substitution issue [Unknown]
  - Product availability issue [Unknown]
  - Illness [Not Recovered/Not Resolved]
  - Off label use [Unknown]
